FAERS Safety Report 4430447-9 (Version None)
Quarter: 2004Q3

REPORT INFORMATION
  Report Type: 
  Country: None (occurrence: None)
  Receive Date: 20040721
  Receipt Date: 20030617
  Transmission Date: 20050211
  Serious: Yes (Life-Threatening, Hospitalization, Disabling, Other)
  Sender: FDA-Public Use
  Company Number: WAES0305USA02127

PATIENT
  Sex: Male

DRUGS (2)
  1. VIOXX [Suspect]
     Dosage: PO
     Route: 048
     Dates: end: 20030518
  2. GLUCOPHAGE [Concomitant]

REACTIONS (1)
  - RENAL FAILURE [None]
